FAERS Safety Report 20119047 (Version 1)
Quarter: 2021Q4

REPORT INFORMATION
  Report Type: Spontaneous
  Country: US (occurrence: US)
  Receive Date: 20211126
  Receipt Date: 20211126
  Transmission Date: 20220303
  Serious: No
  Sender: FDA-Public Use
  Company Number: US-009507513-2111USA002847

PATIENT
  Sex: Female

DRUGS (1)
  1. KEYTRUDA [Suspect]
     Active Substance: PEMBROLIZUMAB
     Indication: Malignant neoplasm progression

REACTIONS (6)
  - Rash [Unknown]
  - Constipation [Unknown]
  - Myalgia [Unknown]
  - Muscle spasms [Unknown]
  - Diarrhoea [Unknown]
  - Product use in unapproved indication [Unknown]
